FAERS Safety Report 8119719-4 (Version None)
Quarter: 2012Q1

REPORT INFORMATION
  Report Type: 
  Country: None (occurrence: None)
  Receive Date: 20120207
  Receipt Date: 20120131
  Transmission Date: 20120608
  Serious: Yes (Other)
  Sender: FDA-Public Use
  Company Number: PHEH2006US02525

PATIENT
  Sex: Female
  Weight: 72.562 kg

DRUGS (12)
  1. PROZAC [Concomitant]
     Indication: DEPRESSION
     Dosage: 20 MG, QD
     Route: 048
  2. MULTI-VITAMINS [Concomitant]
  3. ZOMETA [Suspect]
     Indication: METASTASES TO BONE
     Dosage: 4 MG, QMO
     Route: 042
     Dates: start: 20030115
  4. TAMOXIFEN CITRATE [Concomitant]
     Indication: BREAST CANCER
  5. ARIMIDEX [Concomitant]
     Indication: BREAST CANCER
  6. FEMARA [Concomitant]
     Indication: BREAST CANCER
     Dosage: 2.5 MG, QD
     Route: 048
     Dates: start: 19981101
  7. IMODIUM [Concomitant]
  8. AREDIA [Suspect]
     Indication: METASTASES TO BONE
     Dosage: 60 MG, QMO
     Route: 042
     Dates: start: 19981101, end: 20021219
  9. RESTORIL [Concomitant]
  10. BELLAMINE S [Concomitant]
     Dosage: UNK, BID
     Route: 048
  11. HYDROXYZINE [Concomitant]
  12. ROBAXIN [Concomitant]

REACTIONS (24)
  - PAIN [None]
  - ABSCESS JAW [None]
  - GASTROINTESTINAL HAEMORRHAGE [None]
  - ORAL INFECTION [None]
  - ANXIETY [None]
  - OSTEONECROSIS OF JAW [None]
  - INJURY [None]
  - ORAL DISCOMFORT [None]
  - BONE EROSION [None]
  - IMPAIRED HEALING [None]
  - INTERVERTEBRAL DISC PROTRUSION [None]
  - TOOTH DISORDER [None]
  - BONE DISORDER [None]
  - X-RAY ABNORMAL [None]
  - PAIN IN JAW [None]
  - DEPRESSION [None]
  - FOOT FRACTURE [None]
  - EXOSTOSIS [None]
  - CATARACT [None]
  - ORAL DISORDER [None]
  - INFLAMMATION [None]
  - OSTEOARTHRITIS [None]
  - RIB FRACTURE [None]
  - LIVER FUNCTION TEST ABNORMAL [None]
